FAERS Safety Report 23588574 (Version 1)
Quarter: 2024Q1

REPORT INFORMATION
  Report Type: Spontaneous
  Country: CA (occurrence: CA)
  Receive Date: 20240302
  Receipt Date: 20240302
  Transmission Date: 20240410
  Serious: Yes (Other)
  Sender: FDA-Public Use
  Company Number: None

PATIENT
  Age: 38 Year
  Sex: Female

DRUGS (8)
  1. METHOTREXATE [Suspect]
     Active Substance: METHOTREXATE
     Indication: Arthritis
     Route: 065
  2. CHOLECALCIFEROL [Concomitant]
     Active Substance: CHOLECALCIFEROL
  3. FOLIC ACID [Concomitant]
     Active Substance: FOLIC ACID
  4. MESALAMINE [Concomitant]
     Active Substance: MESALAMINE
  5. MIRENA [Concomitant]
     Active Substance: LEVONORGESTREL
     Dosage: INSERT (EXTENDED- RELEASE)
  6. PRED FORTE [Concomitant]
     Active Substance: PREDNISOLONE ACETATE
     Dosage: SUSPENSION OPHTHALMIC
  7. TOFACITINIB [Concomitant]
     Active Substance: TOFACITINIB
     Indication: Colitis ulcerative
     Dosage: 2 EVERY 1 DAYS
  8. METHOTREXATE [Suspect]
     Active Substance: METHOTREXATE
     Indication: Arthritis
     Route: 048

REACTIONS (3)
  - Condition aggravated [Unknown]
  - Haematochezia [Unknown]
  - Nausea [Unknown]
